FAERS Safety Report 6899428-X (Version None)
Quarter: 2010Q3

REPORT INFORMATION
  Report Type: 
  Country: None (occurrence: None)
  Receive Date: 20100803
  Receipt Date: 20090615
  Transmission Date: 20110219
  Serious: No
  Sender: FDA-Public Use
  Company Number: US-PFIZER INC-2009183075

PATIENT
  Sex: Female
  Weight: 90.7 kg

DRUGS (2)
  1. NEURONTIN [Suspect]
     Indication: HEADACHE
     Dosage: 300 MG, 3X/DAY
     Dates: start: 20090310, end: 20090311
  2. VALTREX [Suspect]
     Indication: HERPES ZOSTER
     Dosage: 1 MG, 3X/DAY
     Dates: start: 20090310, end: 20090311

REACTIONS (6)
  - BLOOD PRESSURE INCREASED [None]
  - CHEST DISCOMFORT [None]
  - DYSPNOEA [None]
  - FATIGUE [None]
  - HEADACHE [None]
  - INFLUENZA [None]
